FAERS Safety Report 15206005 (Version 1)
Quarter: 2018Q3

REPORT INFORMATION
  Report Type: Spontaneous
  Country: FR (occurrence: FR)
  Receive Date: 20180727
  Receipt Date: 20180727
  Transmission Date: 20181010
  Serious: Yes (Hospitalization)
  Sender: FDA-Public Use
  Company Number: FR-INCYTE CORPORATION-2018IN007409

PATIENT

DRUGS (2)
  1. JAKAVI [Suspect]
     Active Substance: RUXOLITINIB
     Indication: MYELOFIBROSIS
     Dosage: 2 DF, QD
     Route: 048
     Dates: start: 20171111, end: 20171220
  2. HYDREA [Suspect]
     Active Substance: HYDROXYUREA
     Indication: MYELOFIBROSIS
     Dosage: 1 DF, QD
     Route: 048
     Dates: start: 201702, end: 20171110

REACTIONS (2)
  - Cardiac failure [Not Recovered/Not Resolved]
  - Dyspnoea [Not Recovered/Not Resolved]

NARRATIVE: CASE EVENT DATE: 20171214
